FAERS Safety Report 23526500 (Version 1)
Quarter: 2024Q1

REPORT INFORMATION
  Report Type: Spontaneous
  Country: US (occurrence: None)
  Receive Date: 20240214
  Receipt Date: 20240214
  Transmission Date: 20240410
  Serious: Yes (Other)
  Sender: FDA-Public Use
  Company Number: None

PATIENT
  Age: 61 Year
  Sex: Male
  Weight: 81 kg

DRUGS (10)
  1. LEVEMIR [Suspect]
     Active Substance: INSULIN DETEMIR
     Indication: Type 2 diabetes mellitus
     Dosage: DAILY SUGCUTANEOUS
     Route: 058
  2. gabapentin 300 mg daily [Concomitant]
  3. Glyburide 5 mg twice daily [Concomitant]
  4. Isoniazid 300 mg daily [Concomitant]
  5. Januvia 100 mg daily [Concomitant]
  6. Lipitor 10 mg daily [Concomitant]
  7. losartan 50 mg daily [Concomitant]
  8. metformin 1000 mg twice daily [Concomitant]
  9. pioglitazone 15 mg daily [Concomitant]
  10. vitamin B-6 50 mg daily [Concomitant]

REACTIONS (3)
  - Peripheral swelling [None]
  - Swelling face [None]
  - Paraesthesia oral [None]

NARRATIVE: CASE EVENT DATE: 20190531
